FAERS Safety Report 20365085 (Version 1)
Quarter: 2022Q1

REPORT INFORMATION
  Report Type: Spontaneous
  Country: CA (occurrence: CA)
  Receive Date: 20220122
  Receipt Date: 20220122
  Transmission Date: 20220424
  Serious: Yes (Other)
  Sender: FDA-Public Use
  Company Number: CA-MLMSERVICE-20220111-3310853-3

PATIENT
  Age: 39 Year
  Sex: Female

DRUGS (9)
  1. ESCITALOPRAM [Interacting]
     Active Substance: ESCITALOPRAM OXALATE
     Indication: Anxiety
     Route: 048
  2. SUMATRIPTAN [Interacting]
     Active Substance: SUMATRIPTAN
     Indication: Migraine prophylaxis
     Dosage: AS NEEDED, DAILY
     Route: 048
     Dates: start: 201701
  3. PROMETHAZINE [Concomitant]
     Active Substance: PROMETHAZINE HYDROCHLORIDE
     Indication: Migraine
     Dosage: AS NEEDED, DAILY
     Route: 048
  4. KETOROLAC [Concomitant]
     Active Substance: KETOROLAC TROMETHAMINE
     Indication: Migraine
     Dosage: AS NEEDED, DAILY
     Route: 048
  5. ETHINYL ESTRADIOL\LEVONORGESTREL [Concomitant]
     Active Substance: ETHINYL ESTRADIOL\LEVONORGESTREL
     Indication: Hormonal contraception
     Route: 048
  6. LORATADINE\PSEUDOEPHEDRINE SULFATE [Concomitant]
     Active Substance: LORATADINE\PSEUDOEPHEDRINE SULFATE
     Indication: Rhinitis allergic
     Dosage: DAILY AS NEEDED, USED ONCE OR TWICE A WEEK
     Route: 048
  7. VITAMIN C [Concomitant]
     Active Substance: ASCORBIC ACID
     Indication: Nutritional supplementation
     Route: 048
  8. VITAMIN D [Concomitant]
     Active Substance: VITAMIN D NOS
     Indication: Nutritional supplementation
     Dosage: DROPS
     Route: 048
  9. ZOLPIDEM [Concomitant]
     Active Substance: ZOLPIDEM TARTRATE
     Indication: Insomnia
     Dosage: AS NEEDED, AT BEDTIME
     Route: 048

REACTIONS (5)
  - Drug interaction [Unknown]
  - Condition aggravated [Unknown]
  - Depressed mood [Unknown]
  - Depressive symptom [Unknown]
  - Drug-disease interaction [Unknown]

NARRATIVE: CASE EVENT DATE: 20180101
